FAERS Safety Report 4499062-5 (Version None)
Quarter: 2004Q4

REPORT INFORMATION
  Report Type: 
  Country: None (occurrence: None)
  Receive Date: 20041110
  Receipt Date: 20041110
  Transmission Date: 20050328
  Serious: Yes (Hospitalization)
  Sender: FDA-Public Use
  Company Number: None

PATIENT
  Age: 80 Year
  Sex: Female
  Weight: 74.1 kg

DRUGS (2)
  1. TASMAR [Suspect]
     Indication: PARKINSON'S DISEASE
     Dosage: 200 MG BID ORAL
     Route: 048
     Dates: start: 20030822, end: 20040822
  2. TASMAR [Suspect]
     Dosage: 100 MG NOON ORAL
     Route: 048

REACTIONS (4)
  - ABDOMINAL PAIN [None]
  - BACK PAIN [None]
  - HEPATOTOXICITY [None]
  - LEUKOCYTOSIS [None]
